FAERS Safety Report 23418794 (Version 1)
Quarter: 2024Q1

REPORT INFORMATION
  Report Type: Spontaneous
  Country: US (occurrence: None)
  Receive Date: 20240118
  Receipt Date: 20240118
  Transmission Date: 20240410
  Serious: No
  Sender: FDA-Public Use
  Company Number: None

PATIENT
  Age: 64 Year
  Sex: Female

DRUGS (6)
  1. RINVOQ [Suspect]
     Active Substance: UPADACITINIB
     Indication: Crohn^s disease
     Dosage: FREQUENCY : DAILY;?
     Route: 048
     Dates: start: 20231102
  2. VITAMIN B12 [Concomitant]
     Active Substance: CYANOCOBALAMIN
  3. FISH OIL [Concomitant]
     Active Substance: FISH OIL
  4. PANTOPRAZOLE [Concomitant]
     Active Substance: PANTOPRAZOLE
  5. XIIDRA [Concomitant]
     Active Substance: LIFITEGRAST
  6. AMITRIPTYLINE [Concomitant]
     Active Substance: AMITRIPTYLINE

REACTIONS (2)
  - Acne [None]
  - Therapy interrupted [None]

NARRATIVE: CASE EVENT DATE: 20231201
